FAERS Safety Report 4387118-7 (Version None)
Quarter: 2004Q2

REPORT INFORMATION
  Report Type: 
  Country: None (occurrence: None)
  Receive Date: 20040630
  Receipt Date: 20040310
  Transmission Date: 20050107
  Serious: No
  Sender: FDA-Public Use
  Company Number: US-GLAXOSMITHKLINE-A0502164A

PATIENT
  Age: 71 Year
  Sex: Male

DRUGS (1)
  1. ADVAIR HFA [Suspect]
     Dosage: 500MCG TWICE PER DAY
     Route: 055
     Dates: start: 20031001, end: 20040218

REACTIONS (2)
  - PHARYNGOLARYNGEAL PAIN [None]
  - TONGUE DISORDER [None]
